FAERS Safety Report 19166260 (Version 6)
Quarter: 2025Q3

REPORT INFORMATION
  Report Type: Spontaneous
  Country: US (occurrence: US)
  Receive Date: 20210421
  Receipt Date: 20250810
  Transmission Date: 20251020
  Serious: No
  Sender: ALEXION PHARMACEUTICALS
  Company Number: US-ALXN-A202104725

PATIENT
  Age: 19 Year
  Sex: Female

DRUGS (2)
  1. STRENSIQ [Suspect]
     Active Substance: ASFOTASE ALFA
     Indication: Hypophosphatasia
  2. STRENSIQ [Suspect]
     Active Substance: ASFOTASE ALFA
     Dosage: 20.8 MILLIGRAM, TIW
     Dates: start: 2021, end: 2023

REACTIONS (16)
  - Fatigue [Not Recovered/Not Resolved]
  - Injection site irritation [Not Recovered/Not Resolved]
  - Vomiting [Unknown]
  - Shunt malfunction [Unknown]
  - Head injury [Unknown]
  - Dizziness [Not Recovered/Not Resolved]
  - Hair growth abnormal [Unknown]
  - Fat tissue increased [Unknown]
  - Injection site urticaria [Not Recovered/Not Resolved]
  - Injection site pain [Recovered/Resolved]
  - Injection site erythema [Not Recovered/Not Resolved]
  - Injection site swelling [Not Recovered/Not Resolved]
  - Injection site warmth [Not Recovered/Not Resolved]
  - Injection site reaction [Unknown]
  - Injection site mass [Recovered/Resolved]
  - Drug ineffective [Unknown]

NARRATIVE: CASE EVENT DATE: 20210101
